FAERS Safety Report 13908532 (Version 1)
Quarter: 2017Q3

REPORT INFORMATION
  Report Type: Spontaneous
  Country: US (occurrence: US)
  Receive Date: 20170827
  Receipt Date: 20170827
  Transmission Date: 20171127
  Serious: Yes (Other)
  Sender: FDA-Public Use
  Company Number: US-CELGENEUS-USA-20170805717

PATIENT
  Sex: Male
  Weight: 102.6 kg

DRUGS (2)
  1. THALOMID [Suspect]
     Active Substance: THALIDOMIDE
     Indication: PANCYTOPENIA
     Dosage: 50 MILLIGRAM
     Route: 048
     Dates: start: 201501
  2. THALOMID [Suspect]
     Active Substance: THALIDOMIDE
     Dosage: 50 MILLIGRAM
     Route: 048
     Dates: start: 201608

REACTIONS (1)
  - Peripheral vascular disorder [Not Recovered/Not Resolved]
